FAERS Safety Report 8481569-7 (Version None)
Quarter: 2012Q3

REPORT INFORMATION
  Report Type: 
  Country: None (occurrence: None)
  Receive Date: 20120702
  Receipt Date: 20120627
  Transmission Date: 20120928
  Serious: Yes (Hospitalization)
  Sender: FDA-Public Use
  Company Number: GB-AMGEN-GBRSP2012030662

PATIENT
  Age: 50 Year
  Sex: Female
  Weight: 68 kg

DRUGS (7)
  1. FLUOROURACIL [Concomitant]
     Indication: BREAST CANCER
     Dosage: 850 MG, UNK
     Route: 042
  2. ZOFRAN [Concomitant]
     Dosage: 8 MG, BID
  3. METOCLOPRAMIDE [Concomitant]
     Dosage: 10 MG, TID
  4. EPIRUBICIN [Concomitant]
     Indication: BREAST CANCER
     Dosage: 170 MG, UNK
     Route: 042
  5. DEXAMETHASONE [Concomitant]
     Dosage: 8 MG, BID
  6. NEULASTA [Suspect]
     Indication: NEUTROPENIA
     Dosage: 6 MG, UNK
     Route: 058
     Dates: start: 20120501
  7. CYCLOPHOSPHAMIDE [Concomitant]
     Indication: BREAST CANCER
     Dosage: 850 MG, UNK
     Route: 042

REACTIONS (10)
  - ERYTHEMA [None]
  - DYSPNOEA [None]
  - NEUTROPENIC SEPSIS [None]
  - NEUTROPENIA [None]
  - SWOLLEN TONGUE [None]
  - SWELLING FACE [None]
  - BODY TEMPERATURE INCREASED [None]
  - OEDEMA MUCOSAL [None]
  - DRUG INEFFECTIVE [None]
  - ANAPHYLACTIC REACTION [None]
